FAERS Safety Report 10146895 (Version 2)
Quarter: 2014Q2

REPORT INFORMATION
  Report Type: Spontaneous
  Country: BE (occurrence: BE)
  Receive Date: 20140501
  Receipt Date: 20140519
  Transmission Date: 20141212
  Serious: Yes (Other)
  Sender: FDA-Public Use
  Company Number: BE-ELI_LILLY_AND_COMPANY-BE201404007783

PATIENT
  Sex: Female

DRUGS (2)
  1. CYMBALTA [Suspect]
     Indication: FIBROMYALGIA
     Dosage: 60 MG, UNKNOWN
     Route: 065
     Dates: start: 201402
  2. CYMBALTA [Suspect]
     Indication: ANXIETY
     Dosage: 60 MG, QD
     Route: 065
     Dates: start: 20140422

REACTIONS (2)
  - Skin exfoliation [Recovered/Resolved]
  - Off label use [Recovered/Resolved]
